FAERS Safety Report 6878675-7 (Version None)
Quarter: 2010Q3

REPORT INFORMATION
  Report Type: 
  Country: None (occurrence: None)
  Receive Date: 20100728
  Receipt Date: 20100723
  Transmission Date: 20110219
  Serious: Yes (Hospitalization)
  Sender: FDA-Public Use
  Company Number: B0650153A

PATIENT
  Sex: Female

DRUGS (2)
  1. LAPATINIB [Suspect]
     Dosage: 1250MG PER DAY
     Route: 048
     Dates: start: 20100331
  2. XELODA [Suspect]
     Dosage: 2000MG PER DAY
     Route: 048
     Dates: start: 20100331

REACTIONS (1)
  - DIARRHOEA [None]
